FAERS Safety Report 9196020 (Version 1)
Quarter: 2013Q1

REPORT INFORMATION
  Report Type: Spontaneous
  Country: US (occurrence: None)
  Receive Date: 20120705
  Receipt Date: 20120705
  Transmission Date: 20140127
  Serious: Yes (Hospitalization)
  Sender: FDA-Public Use
  Company Number: US-CYPR-2012-000030

PATIENT
  Age: 48 Year
  Sex: Female
  Weight: 127 kg

DRUGS (17)
  1. CLOPIDOGREL [Suspect]
     Indication: ANTIPLATELET THERAPY
     Route: 048
     Dates: start: 20110520, end: 20120318
  2. ASPIRIN [Suspect]
     Indication: CORONARY ARTERY DISEASE
     Dates: start: 201004, end: 201203
  3. LOTENSIN [Concomitant]
  4. LOTENSIN [Concomitant]
  5. FISH [Concomitant]
  6. NITROSTAT [Concomitant]
  7. PEPCID [Concomitant]
  8. CLONIDINE [Concomitant]
  9. METFORMIN [Concomitant]
  10. PRAVASTATIN [Concomitant]
  11. ALBUTEROL [Concomitant]
  12. CITALOPRAM [Concomitant]
  13. CENTRUM SILVER [Concomitant]
  14. VITAMIN E [Concomitant]
  15. CYPHER STENT (1) [Concomitant]
  16. CYPHER STENT (2) [Concomitant]
  17. CYPHER STENT (3) [Concomitant]

REACTIONS (1)
  - Angina pectoris [None]
